FAERS Safety Report 20935847 (Version 7)
Quarter: 2023Q2

REPORT INFORMATION
  Report Type: Report from Study
  Country: US (occurrence: US)
  Receive Date: 20220609
  Receipt Date: 20230421
  Transmission Date: 20230721
  Serious: No
  Sender: FDA-Public Use
  Company Number: US-NOVARTISTESTPH-NVSC2022US131901

PATIENT
  Age: 34 Year
  Sex: Female

DRUGS (2)
  1. COSENTYX [Suspect]
     Active Substance: SECUKINUMAB
     Indication: Psoriasis
     Dosage: UNK
     Route: 065
  2. COSENTYX [Suspect]
     Active Substance: SECUKINUMAB
     Dosage: 300 MG, QMO
     Route: 058

REACTIONS (9)
  - Emotional distress [Unknown]
  - Psoriasis [Unknown]
  - Skin lesion [Not Recovered/Not Resolved]
  - Haemorrhoids [Unknown]
  - Bronchitis [Unknown]
  - Upper respiratory tract infection [Unknown]
  - Product storage error [Unknown]
  - Inappropriate schedule of product administration [Unknown]
  - Poor quality product administered [Unknown]

NARRATIVE: CASE EVENT DATE: 20230127
